FAERS Safety Report 8984493 (Version 1)
Quarter: 2012Q4

REPORT INFORMATION
  Report Type: Report from Study
  Country: JP (occurrence: JP)
  Receive Date: 20121226
  Receipt Date: 20121226
  Transmission Date: 20130627
  Serious: Yes (Hospitalization, Other)
  Sender: FDA-Public Use
  Company Number: JP-PFIZER INC-2012325050

PATIENT
  Age: 73 Year
  Sex: Female

DRUGS (19)
  1. MEDROL [Suspect]
     Indication: RA
     Dosage: 8 mg, 1x/day
     Route: 048
  2. TOCILIZUMAB [Suspect]
     Indication: RA
     Dosage: 400 mg once in 4 weeks
     Route: 041
     Dates: start: 20090313, end: 20090313
  3. TOCILIZUMAB [Suspect]
     Dosage: 400 mg once in 4 weeks
     Dates: start: 20090410, end: 20090410
  4. TOCILIZUMAB [Suspect]
     Dosage: 400 mg once in 4 weeks
     Route: 041
     Dates: start: 20090508, end: 20090508
  5. TOCILIZUMAB [Suspect]
     Dosage: 400 mg once in 4 weeks
     Route: 041
     Dates: start: 20090605, end: 20090605
  6. TOCILIZUMAB [Suspect]
     Dosage: 400 mg once in 4 weeks
     Route: 041
     Dates: start: 20090703, end: 20090703
  7. TOCILIZUMAB [Suspect]
     Dosage: 400 mg once in 4 weeks
     Route: 041
     Dates: start: 20090731, end: 20090731
  8. TOCILIZUMAB [Suspect]
     Dosage: 400 mg once in 4 weeks
     Route: 041
     Dates: start: 20090828, end: 20100319
  9. TOCILIZUMAB [Suspect]
     Dosage: 400 mg once in 4 weeks
     Route: 041
     Dates: start: 20100517, end: 20100517
  10. TOCILIZUMAB [Suspect]
     Dosage: 400 mg once in 4 weeks
     Route: 041
     Dates: start: 20100712, end: 20100809
  11. TOCILIZUMAB [Suspect]
     Dosage: 400 mg once in 4 weeks
     Route: 041
     Dates: start: 20100916
  12. METOLATE [Suspect]
     Dosage: 6 mg, weekly
     Route: 048
  13. MOHRUS [Concomitant]
     Indication: RA
     Dosage: UNK
     Route: 061
  14. LOXONIN [Concomitant]
     Indication: RA
     Dosage: UNK
     Route: 048
  15. SELBEX [Concomitant]
     Indication: GASTRITIS PROPHYLAXIS
     Dosage: UNK
     Route: 048
  16. FOLIAMIN [Concomitant]
     Indication: PROPHYLAXIS
     Dosage: 5 mg, weekly
     Route: 048
  17. VOLTAREN [Concomitant]
     Indication: RA
     Dosage: 25 mg, 1x/day
     Route: 054
  18. MYSLEE [Concomitant]
     Indication: INSOMNIA
     Dosage: 5 mg, 1x/day
     Route: 048
     Dates: start: 20090925
  19. EVISTA [Concomitant]
     Dosage: 60 mg, 1x/day
     Route: 048
     Dates: start: 20100219

REACTIONS (2)
  - Fibroma [Unknown]
  - Purulence [Recovered/Resolved]
